FAERS Safety Report 9167999 (Version 3)
Quarter: 2013Q3

REPORT INFORMATION
  Report Type: Spontaneous
  Country: ES (occurrence: ES)
  Receive Date: 20130318
  Receipt Date: 20130709
  Transmission Date: 20140515
  Serious: Yes (Hospitalization, Other)
  Sender: FDA-Public Use
  Company Number: ES-ELI_LILLY_AND_COMPANY-ES201303003843

PATIENT
  Age: 77 Year
  Sex: Male

DRUGS (9)
  1. FORSTEO [Suspect]
     Dosage: 20 UG, QD
  2. CALCIUM + VITAMIN D [Concomitant]
     Dosage: UNK, QD
  3. ACETYLSALICYLIC ACID [Concomitant]
     Dosage: 100 MG, QD
  4. ALLOPURINOL [Concomitant]
     Dosage: 100 MG, QD
  5. FUROSEMIDE [Concomitant]
     Dosage: 20 MG, QD
  6. OMEPRAZOLE [Concomitant]
     Dosage: 20 MG, QD
  7. PARACETAMOL W/TRAMADOL [Concomitant]
     Dosage: UNK, PRN
  8. SIMVASTATIN [Concomitant]
     Dosage: 20 MG, QD
  9. VALSARTAN [Concomitant]
     Dosage: 40 MG, QD

REACTIONS (3)
  - Nephroangiosclerosis [Unknown]
  - Renal impairment [Recovered/Resolved]
  - Hypercalcaemia [Recovered/Resolved]
